FAERS Safety Report 17030836 (Version 2)
Quarter: 2020Q4

REPORT INFORMATION
  Report Type: Spontaneous
  Country: PR (occurrence: US)
  Receive Date: 20191114
  Receipt Date: 20201230
  Transmission Date: 20210113
  Serious: Yes (Hospitalization)
  Sender: FDA-Public Use
  Company Number: US-ALLERGAN-1946103US

PATIENT
  Sex: Female

DRUGS (2)
  1. ACETIC ACID;HYDROCORTISONE UNK [Suspect]
     Active Substance: ACETIC ACID\HYDROCORTISONE
     Dosage: UNK, QID
     Route: 061
  2. ACETIC ACID;HYDROCORTISONE UNK [Suspect]
     Active Substance: ACETIC ACID\HYDROCORTISONE
     Indication: OTITIS EXTERNA
     Dosage: UNK, QID
     Route: 061

REACTIONS (3)
  - Condition aggravated [Recovered/Resolved]
  - Otitis externa [Recovered/Resolved]
  - Dermatitis contact [Recovered/Resolved]
